FAERS Safety Report 12536767 (Version 1)
Quarter: 2016Q3

REPORT INFORMATION
  Report Type: Spontaneous
  Country: CH (occurrence: DE)
  Receive Date: 20160707
  Receipt Date: 20160707
  Transmission Date: 20161109
  Serious: Yes (Other)
  Sender: FDA-Public Use
  Company Number: CH-LPDUSPRD-20160573

PATIENT
  Age: 28 Year
  Sex: Female

DRUGS (1)
  1. FERINJECT [Suspect]
     Active Substance: FERRIC CARBOXYMALTOSE
     Dosage: 500 MG IN 100 MG NACL
     Route: 041

REACTIONS (5)
  - Headache [Unknown]
  - Pyrexia [Unknown]
  - Dizziness [Unknown]
  - Tremor [Unknown]
  - Tachycardia [Unknown]
